FAERS Safety Report 6001278-3 (Version None)
Quarter: 2008Q4

REPORT INFORMATION
  Report Type: 
  Country: None (occurrence: None)
  Receive Date: 20081215
  Receipt Date: 20071114
  Transmission Date: 20090506
  Serious: No
  Sender: FDA-Public Use
  Company Number: US-AMGEN-KDL251114

PATIENT
  Sex: Female
  Weight: 109 kg

DRUGS (13)
  1. ENBREL [Suspect]
     Indication: SYSTEMIC LUPUS ERYTHEMATOSUS
     Route: 058
     Dates: start: 20061001
  2. METHOTREXATE [Concomitant]
  3. PREVACID [Concomitant]
  4. LASIX [Concomitant]
  5. VALTREX [Concomitant]
  6. FOLIC ACID [Concomitant]
  7. POTASSIUM CHLORIDE [Concomitant]
  8. LYRICA [Concomitant]
  9. BONIVA [Concomitant]
  10. PREDNISONE TAB [Concomitant]
  11. CELEBREX [Concomitant]
  12. ACTOS [Concomitant]
  13. COREG [Concomitant]

REACTIONS (3)
  - DERMAL CYST [None]
  - OPEN WOUND [None]
  - PAIN [None]
